FAERS Safety Report 15239707 (Version 1)
Quarter: 2018Q3

REPORT INFORMATION
  Report Type: Spontaneous
  Country: US (occurrence: US)
  Receive Date: 20180803
  Receipt Date: 20180803
  Transmission Date: 20181010
  Serious: No
  Sender: FDA-Public Use
  Company Number: US-SUNOVION-2018SUN002941

PATIENT
  Age: 58 Year
  Sex: Female

DRUGS (6)
  1. BROVANA [Suspect]
     Active Substance: ARFORMOTEROL TARTRATE
     Indication: ASTHMA
     Dosage: 15MCG/2ML, BID
     Route: 055
     Dates: start: 201807
  2. BROVANA [Suspect]
     Active Substance: ARFORMOTEROL TARTRATE
     Indication: RESPIRATORY DISTRESS
     Dosage: 15MCG/2ML, BID
     Route: 055
     Dates: start: 20180508, end: 20180521
  3. BROVANA [Suspect]
     Active Substance: ARFORMOTEROL TARTRATE
     Indication: CHRONIC OBSTRUCTIVE PULMONARY DISEASE
  4. BUDESONIDE. [Concomitant]
     Active Substance: BUDESONIDE
  5. PREDNISONE. [Concomitant]
     Active Substance: PREDNISONE
     Dosage: 2.5 MG, QD
     Route: 048
  6. ALBUTEROL. [Concomitant]
     Active Substance: ALBUTEROL
     Dosage: UNK, EVERY FOUR HOURS AS NECESSARY

REACTIONS (6)
  - Dyspnoea [Unknown]
  - Dizziness [Unknown]
  - Heart rate increased [Unknown]
  - Off label use [Unknown]
  - Headache [Unknown]
  - Fatigue [Unknown]
